FAERS Safety Report 5893715-X (Version None)
Quarter: 2008Q3

REPORT INFORMATION
  Report Type: 
  Country: None (occurrence: None)
  Receive Date: 20080923
  Receipt Date: 20080918
  Transmission Date: 20090109
  Serious: Yes (Other)
  Sender: FDA-Public Use
  Company Number: US-GILEAD-2008-0017163

PATIENT
  Sex: Female
  Weight: 56.75 kg

DRUGS (12)
  1. LETAIRIS [Suspect]
     Indication: PULMONARY ARTERIAL HYPERTENSION
     Route: 048
     Dates: start: 20080404, end: 20080903
  2. NITROFURANTOIN [Concomitant]
     Route: 048
  3. PAXIL [Concomitant]
     Route: 048
  4. REVATIO [Concomitant]
     Route: 048
  5. PROTONIX [Concomitant]
     Route: 048
  6. LOMOTIL [Concomitant]
     Route: 048
  7. PREMPRO [Concomitant]
     Dosage: 0.625/2.5 MG
     Route: 048
  8. K-DUR [Concomitant]
     Route: 048
  9. ASMANEX TWISTHALER [Concomitant]
  10. LANOXIN [Concomitant]
     Route: 048
  11. ALLOPURINOL [Concomitant]
     Route: 048
  12. TENORMIN [Concomitant]
     Route: 048

REACTIONS (1)
  - ERYTHEMA NODOSUM [None]
